FAERS Safety Report 22518355 (Version 2)
Quarter: 2023Q2

REPORT INFORMATION
  Report Type: Spontaneous
  Country: US (occurrence: US)
  Receive Date: 20230605
  Receipt Date: 20230605
  Transmission Date: 20230722
  Serious: Yes (Other)
  Sender: FDA-Public Use
  Company Number: US-BRISTOL-MYERS SQUIBB COMPANY-2023-077079

PATIENT
  Age: 79 Year
  Sex: Female
  Weight: 68 kg

DRUGS (55)
  1. REVLIMID [Suspect]
     Active Substance: LENALIDOMIDE
     Indication: Plasma cell myeloma
     Route: 048
     Dates: start: 20200102, end: 20200203
  2. REVLIMID [Suspect]
     Active Substance: LENALIDOMIDE
     Dosage: FREQUENCY: USED AS DIRECTED
     Route: 048
     Dates: start: 20200203, end: 20200227
  3. REVLIMID [Suspect]
     Active Substance: LENALIDOMIDE
     Dosage: FREQUENCY: USED AS DIRECTED
     Route: 048
     Dates: start: 20200227, end: 20200324
  4. REVLIMID [Suspect]
     Active Substance: LENALIDOMIDE
     Dosage: FREQUENCY: USED AS DIRECTED
     Route: 048
     Dates: start: 20200324, end: 20200420
  5. REVLIMID [Suspect]
     Active Substance: LENALIDOMIDE
     Dosage: FREQUENCY: USED AS DIRECTED
     Route: 048
     Dates: start: 20200420, end: 20200522
  6. REVLIMID [Suspect]
     Active Substance: LENALIDOMIDE
     Dosage: FREQUENCY: USED AS DIRECTED
     Route: 048
     Dates: start: 20200522, end: 20200612
  7. REVLIMID [Suspect]
     Active Substance: LENALIDOMIDE
     Dosage: FREQUENCY: USED AS DIRECTED
     Route: 048
     Dates: start: 20200612, end: 20200615
  8. REVLIMID [Suspect]
     Active Substance: LENALIDOMIDE
     Dosage: FREQUENCY: USED AS DIRECTED
     Route: 048
     Dates: start: 20200615, end: 20200716
  9. REVLIMID [Suspect]
     Active Substance: LENALIDOMIDE
     Dosage: FREQUENCY: USED AS DIRECTED
     Route: 048
     Dates: start: 20200716, end: 20200814
  10. REVLIMID [Suspect]
     Active Substance: LENALIDOMIDE
     Dosage: FREQUENCY: USED AS DIRECTED
     Route: 048
     Dates: start: 20200814, end: 20200915
  11. REVLIMID [Suspect]
     Active Substance: LENALIDOMIDE
     Dosage: FREQUENCY: USED AS DIRECTED
     Route: 048
     Dates: start: 20200915, end: 20201014
  12. REVLIMID [Suspect]
     Active Substance: LENALIDOMIDE
     Dosage: FREQUENCY: USED AS DIRECTED
     Route: 048
     Dates: start: 20201014, end: 20201103
  13. REVLIMID [Suspect]
     Active Substance: LENALIDOMIDE
     Dosage: FREQUENCY: USED AS DIRECTED
     Route: 048
     Dates: start: 20201103, end: 20201203
  14. REVLIMID [Suspect]
     Active Substance: LENALIDOMIDE
     Dosage: FREQUENCY: USED AS DIRECTED
     Route: 048
     Dates: start: 20201203, end: 20210104
  15. REVLIMID [Suspect]
     Active Substance: LENALIDOMIDE
     Dosage: FREQUENCY: USED AS DIRECTED
     Route: 048
     Dates: start: 20210104, end: 20210128
  16. REVLIMID [Suspect]
     Active Substance: LENALIDOMIDE
     Dosage: FREQUENCY: USED AS DIRECTED
     Route: 048
     Dates: start: 20210128, end: 20210225
  17. REVLIMID [Suspect]
     Active Substance: LENALIDOMIDE
     Dosage: FREQUENCY: USED AS DIRECTED
     Route: 048
     Dates: start: 20210225, end: 20210325
  18. REVLIMID [Suspect]
     Active Substance: LENALIDOMIDE
     Dosage: FREQUENCY: USED AS DIRECTED
     Route: 048
     Dates: start: 20210325, end: 20210423
  19. REVLIMID [Suspect]
     Active Substance: LENALIDOMIDE
     Dosage: FREQUENCY: USED AS DIRECTED
     Route: 048
     Dates: start: 20210423, end: 20210520
  20. REVLIMID [Suspect]
     Active Substance: LENALIDOMIDE
     Dosage: FREQUENCY: USED AS DIRECTED
     Route: 048
     Dates: start: 20210520, end: 20210623
  21. REVLIMID [Suspect]
     Active Substance: LENALIDOMIDE
     Dosage: FREQUENCY: USED AS DIRECTED
     Route: 048
     Dates: start: 20210623, end: 20210715
  22. REVLIMID [Suspect]
     Active Substance: LENALIDOMIDE
     Dosage: FREQUENCY: USED AS DIRECTED
     Route: 048
     Dates: start: 20210715, end: 20210816
  23. REVLIMID [Suspect]
     Active Substance: LENALIDOMIDE
     Dosage: FREQUENCY: USED AS DIRECTED
     Route: 048
     Dates: start: 20210816, end: 20210909
  24. REVLIMID [Suspect]
     Active Substance: LENALIDOMIDE
     Dosage: FREQUENCY: USED AS DIRECTED
     Route: 048
     Dates: start: 20210909, end: 20211007
  25. REVLIMID [Suspect]
     Active Substance: LENALIDOMIDE
     Dosage: FREQUENCY: USED AS DIRECTED
     Route: 048
     Dates: start: 20211007, end: 20211108
  26. REVLIMID [Suspect]
     Active Substance: LENALIDOMIDE
     Dosage: FREQUENCY: USED AS DIRECTED
     Route: 048
     Dates: start: 20211108, end: 20211202
  27. REVLIMID [Suspect]
     Active Substance: LENALIDOMIDE
     Dosage: FREQUENCY: USED AS DIRECTED
     Route: 048
     Dates: start: 20211202, end: 20220125
  28. REVLIMID [Suspect]
     Active Substance: LENALIDOMIDE
     Dosage: FREQUENCY: USED AS DIRECTED
     Route: 048
     Dates: start: 20220125, end: 20220224
  29. REVLIMID [Suspect]
     Active Substance: LENALIDOMIDE
     Dosage: FREQUENCY: USED AS DIRECTED
     Route: 048
     Dates: start: 20220224, end: 20220324
  30. REVLIMID [Suspect]
     Active Substance: LENALIDOMIDE
     Dosage: FREQUENCY: USED AS DIRECTED
     Route: 048
     Dates: start: 20220324, end: 20220418
  31. REVLIMID [Suspect]
     Active Substance: LENALIDOMIDE
     Dosage: FREQUENCY: USED AS DIRECTED
     Route: 048
     Dates: start: 20220418, end: 20220518
  32. REVLIMID [Suspect]
     Active Substance: LENALIDOMIDE
     Dosage: FREQUENCY: USED AS DIRECTED
     Route: 048
     Dates: start: 20220518, end: 20220614
  33. REVLIMID [Suspect]
     Active Substance: LENALIDOMIDE
     Dosage: FREQUENCY: USED AS DIRECTED
     Route: 048
     Dates: start: 20220614, end: 20220713
  34. REVLIMID [Suspect]
     Active Substance: LENALIDOMIDE
     Dosage: FREQUENCY: USED AS DIRECTED
     Route: 048
     Dates: start: 20220713, end: 20220811
  35. REVLIMID [Suspect]
     Active Substance: LENALIDOMIDE
     Dosage: FREQUENCY: USED AS DIRECTED
     Route: 048
     Dates: start: 20220811, end: 20220907
  36. REVLIMID [Suspect]
     Active Substance: LENALIDOMIDE
     Dosage: FREQUENCY: USED AS DIRECTED
     Route: 048
     Dates: start: 20220907, end: 20221005
  37. REVLIMID [Suspect]
     Active Substance: LENALIDOMIDE
     Dosage: FREQUENCY: USED AS DIRECTED
     Route: 048
     Dates: start: 20221005, end: 20221101
  38. REVLIMID [Suspect]
     Active Substance: LENALIDOMIDE
     Dosage: FREQUENCY: USED AS DIRECTED
     Route: 048
     Dates: start: 20221101, end: 20221130
  39. REVLIMID [Suspect]
     Active Substance: LENALIDOMIDE
     Dosage: FREQUENCY: USED AS DIRECTED
     Route: 048
     Dates: start: 20221101, end: 20230104
  40. REVLIMID [Suspect]
     Active Substance: LENALIDOMIDE
     Dosage: FREQUENCY: USED AS DIRECTED
     Route: 048
     Dates: start: 20230104, end: 20230126
  41. REVLIMID [Suspect]
     Active Substance: LENALIDOMIDE
     Dosage: FREQUENCY: USED AS DIRECTED
     Route: 048
     Dates: start: 20230126, end: 20230302
  42. REVLIMID [Suspect]
     Active Substance: LENALIDOMIDE
     Dosage: FREQUENCY: USED AS DIRECTED
     Route: 048
     Dates: start: 20230302, end: 20230330
  43. REVLIMID [Suspect]
     Active Substance: LENALIDOMIDE
     Dosage: FREQUENCY: USED AS DIRECTED
     Route: 048
     Dates: start: 20230330
  44. METOPROLOL TARTRATE [Concomitant]
     Active Substance: METOPROLOL TARTRATE
     Indication: Product used for unknown indication
     Route: 048
     Dates: start: 20200108, end: 20210910
  45. ASPIRIN [Concomitant]
     Active Substance: ASPIRIN
     Indication: Product used for unknown indication
     Route: 048
     Dates: start: 20200108
  46. VITAMINS NOS [Concomitant]
     Active Substance: VITAMINS
     Indication: Product used for unknown indication
     Route: 048
     Dates: start: 20200108
  47. CALCIUM [Concomitant]
     Active Substance: CALCIUM
     Indication: Product used for unknown indication
     Route: 048
     Dates: start: 20200108
  48. BIOTIN [Concomitant]
     Active Substance: BIOTIN
     Indication: Product used for unknown indication
     Route: 048
     Dates: start: 20200108
  49. DEXAMETHASONE [Concomitant]
     Active Substance: DEXAMETHASONE
     Indication: Product used for unknown indication
     Dosage: INDICATED WITH REVLIMID
     Route: 048
     Dates: start: 20200420
  50. PRESERVISION AREDS 2 + MULTIVITAMIN [Concomitant]
     Indication: Product used for unknown indication
     Route: 048
     Dates: start: 20210106
  51. MINERALS\VITAMINS [Concomitant]
     Active Substance: MINERALS\VITAMINS
     Indication: Product used for unknown indication
     Route: 048
     Dates: start: 20210129
  52. MELOXICAM [Concomitant]
     Active Substance: MELOXICAM
     Indication: Product used for unknown indication
     Route: 048
     Dates: start: 20210326, end: 20210404
  53. GABAPENTIN [Concomitant]
     Active Substance: GABAPENTIN
     Indication: Product used for unknown indication
     Route: 048
     Dates: start: 20210719
  54. PANTOPRAZOLE SODIUM [Concomitant]
     Active Substance: PANTOPRAZOLE SODIUM
     Indication: Product used for unknown indication
     Route: 048
     Dates: start: 20210719
  55. CARVEDILOL [Concomitant]
     Active Substance: CARVEDILOL
     Indication: Product used for unknown indication
     Route: 048
     Dates: start: 20210910

REACTIONS (2)
  - Internal haemorrhage [Recovering/Resolving]
  - Full blood count decreased [Recovering/Resolving]

NARRATIVE: CASE EVENT DATE: 20230320
